FAERS Safety Report 9893432 (Version 2)
Quarter: 2014Q1

REPORT INFORMATION
  Report Type: Spontaneous
  Country: US (occurrence: US)
  Receive Date: 20140213
  Receipt Date: 20140214
  Transmission Date: 20141002
  Serious: Yes (Hospitalization)
  Sender: FDA-Public Use
  Company Number: US-DRREDDYS-USA/USA/14/0038012

PATIENT
  Age: 70 Year
  Sex: Female
  Weight: 70.37 kg

DRUGS (3)
  1. LANSOPRAZOLE DR CAPSULES 15MG OTC [Suspect]
     Indication: DYSPEPSIA
     Route: 048
     Dates: start: 20140202, end: 20140207
  2. PEPTO-BISMOL [Suspect]
     Indication: DYSPEPSIA
     Route: 048
     Dates: start: 20140202, end: 20140207
  3. DOXYCYCLINE [Suspect]
     Indication: INFECTION
     Route: 048

REACTIONS (2)
  - Rash generalised [Recovered/Resolved]
  - Extra dose administered [Unknown]
